FAERS Safety Report 21215490 (Version 1)
Quarter: 2022Q3

REPORT INFORMATION
  Report Type: Spontaneous
  Country: US (occurrence: None)
  Receive Date: 20220815
  Receipt Date: 20220815
  Transmission Date: 20221027
  Serious: Yes (Hospitalization)
  Sender: FDA-Public Use
  Company Number: None

PATIENT
  Age: 86 Year
  Sex: Male
  Weight: 79.2 kg

DRUGS (32)
  1. CAPECITABINE [Suspect]
     Active Substance: CAPECITABINE
     Indication: Colon cancer
     Dosage: 2000-1500MG TWICE A DAY ORAL?
     Route: 048
     Dates: start: 202205
  2. ACETAMINOPHEN [Concomitant]
     Active Substance: ACETAMINOPHEN
  3. ACITRETIN [Concomitant]
     Active Substance: ACITRETIN
  4. ATORVASTATIN CALCIUM [Concomitant]
     Active Substance: ATORVASTATIN CALCIUM
  5. Calcium 500 + D3 [Concomitant]
  6. diphenhydramine Eliquis [Concomitant]
  7. Evusheld Intramuscular VITAMIN [Concomitant]
  8. FAMOTIDINE [Concomitant]
     Active Substance: FAMOTIDINE
  9. FERROUSOL [Concomitant]
  10. FISH OIL [Concomitant]
     Active Substance: FISH OIL
  11. Glucosamide [Concomitant]
  12. HEPARIN [Concomitant]
  13. IBUPROFEN [Concomitant]
  14. Iron K-DUR [Concomitant]
  15. KEPPRA [Concomitant]
     Active Substance: LEVETIRACETAM
  16. LAMISIL [Concomitant]
     Active Substance: TERBINAFINE HYDROCHLORIDE
  17. LIPITOR [Concomitant]
     Active Substance: ATORVASTATIN CALCIUM
  18. LISINOPRIL [Concomitant]
     Active Substance: LISINOPRIL
  19. LOSARTAN [Concomitant]
  20. Potassium-HCTZ [Concomitant]
  21. LUTEIN [Concomitant]
     Active Substance: LUTEIN
  22. NORVASC [Concomitant]
     Active Substance: AMLODIPINE BESYLATE
  23. ONDANSETRON [Concomitant]
     Active Substance: ONDANSETRON
  24. PREDNISONE [Concomitant]
     Active Substance: PREDNISONE
  25. MINERALS\VITAMINS [Concomitant]
     Active Substance: MINERALS\VITAMINS
  26. Prilosec [Concomitant]
  27. RITUXAN [Concomitant]
     Active Substance: RITUXIMAB
  28. SORIATANE [Concomitant]
     Active Substance: ACITRETIN
  29. TAMSULOSIN [Concomitant]
  30. TRIAMCINOLONE ACETONIDE [Concomitant]
     Active Substance: TRIAMCINOLONE ACETONIDE
  31. VITAMIN C [Concomitant]
     Active Substance: ASCORBIC ACID
  32. VITAMIN D3 [Concomitant]
     Active Substance: CHOLECALCIFEROL

REACTIONS (1)
  - Muscular weakness [None]
